FAERS Safety Report 8376703-3 (Version None)
Quarter: 2012Q2

REPORT INFORMATION
  Report Type: 
  Country: None (occurrence: None)
  Receive Date: 20120522
  Receipt Date: 20120516
  Transmission Date: 20120825
  Serious: Yes (Death)
  Sender: FDA-Public Use
  Company Number: JP-ASTRAZENECA-2012SE27372

PATIENT
  Age: 72 Year
  Sex: Male

DRUGS (14)
  1. TS-1 [Suspect]
     Indication: CHEMOTHERAPY
     Dosage: 120 MG/BODY
     Route: 048
     Dates: start: 20110217
  2. AQUPLA [Suspect]
     Dosage: DECREASED TO 70%
  3. MEROPENEM [Suspect]
     Indication: PYREXIA
     Route: 042
     Dates: start: 20110428
  4. TS-1 [Suspect]
     Dosage: DECREASED TO 70%
     Route: 048
  5. AQUPLA [Suspect]
     Indication: OESOPHAGEAL CARCINOMA
     Dosage: 135 MG/BODY
     Dates: start: 20110217
  6. TS-1 [Suspect]
     Indication: HYPOPHARYNGEAL CANCER STAGE IV
     Dosage: 120 MG/BODY
     Route: 048
     Dates: start: 20110217
  7. AQUPLA [Suspect]
     Indication: CHEMOTHERAPY
     Dosage: 135 MG/BODY
     Dates: start: 20110217
  8. AQUPLA [Suspect]
     Dosage: DECREASED TO 70%
  9. CEFPIROME SULFATE [Concomitant]
     Indication: ANTIBIOTIC THERAPY
  10. AQUPLA [Suspect]
     Indication: HYPOPHARYNGEAL CANCER STAGE IV
     Dosage: 135 MG/BODY
     Dates: start: 20110217
  11. AQUPLA [Suspect]
     Dosage: DECREASED TO 70%
  12. TS-1 [Suspect]
     Dosage: DECREASED TO 70%
     Route: 048
  13. TS-1 [Suspect]
     Indication: OESOPHAGEAL CARCINOMA
     Dosage: 120 MG/BODY
     Route: 048
     Dates: start: 20110217
  14. TS-1 [Suspect]
     Dosage: DECREASED TO 70%
     Route: 048

REACTIONS (1)
  - INTERSTITIAL LUNG DISEASE [None]
